FAERS Safety Report 8168882-8 (Version None)
Quarter: 2012Q1

REPORT INFORMATION
  Report Type: 
  Country: None (occurrence: None)
  Receive Date: 20120227
  Receipt Date: 20120217
  Transmission Date: 20120608
  Serious: Yes (Hospitalization, Other)
  Sender: FDA-Public Use
  Company Number: JP-ABBOTT-11P-087-0879873-00

PATIENT
  Sex: Female
  Weight: 70 kg

DRUGS (18)
  1. CYCLOSPORINE [Concomitant]
     Dosage: 25 MG DAILY
     Dates: start: 20100517, end: 20100531
  2. EBASTINE [Concomitant]
     Indication: PSORIASIS
     Dosage: 10 MG DAILY
     Route: 048
     Dates: start: 20100531, end: 20100712
  3. LORATADINE [Concomitant]
     Indication: PSORIASIS
     Dosage: 10 MG DAILY
     Route: 048
     Dates: start: 20100419
  4. ISONIAZID [Concomitant]
     Indication: ANTIBIOTIC PROPHYLAXIS
     Dosage: 300 MG DAILY
     Route: 048
     Dates: start: 20100329
  5. HUMIRA [Suspect]
     Dates: start: 20100430
  6. FLUOCINONIDE [Concomitant]
     Indication: PSORIASIS
     Dosage: Q.S.
     Route: 061
     Dates: end: 20100712
  7. PYRIDOXAL PHOSPHATE HYDRATE [Concomitant]
     Indication: PROPHYLAXIS
     Dosage: 30 MG DAILY
     Route: 048
  8. VITAMIN A [Concomitant]
     Indication: PSORIASIS
     Dosage: Q.S.
     Route: 061
  9. CYCLOSPORINE [Concomitant]
     Indication: PSORIASIS
     Dosage: 100 MG DAILY
     Route: 048
     Dates: start: 20100419, end: 20100430
  10. CYCLOSPORINE [Concomitant]
     Dosage: 50 MG DAILY
     Dates: start: 20100601, end: 20100712
  11. ADAPALENE [Concomitant]
     Indication: PRODUCT USED FOR UNKNOWN INDICATION
     Dosage: Q.S.
     Route: 061
  12. CLINDAMYCIN [Concomitant]
     Indication: PRODUCT USED FOR UNKNOWN INDICATION
     Dosage: Q.S.
     Route: 061
  13. DEXAMETHASONE PROPIONATE [Concomitant]
     Indication: PSORIASIS
     Dosage: Q.S.
     Route: 061
  14. MAXACALCITOL [Concomitant]
     Indication: PSORIASIS
     Dosage: Q.S.
     Route: 061
  15. CYCLOSPORINE [Concomitant]
     Dosage: 25 MG DAILY
     Dates: start: 20100713, end: 20100726
  16. PYRIDOXAL PHOSPHATE HYDRATE [Concomitant]
     Indication: ADVERSE DRUG REACTION
  17. HUMIRA [Suspect]
     Indication: PSORIASIS
     Route: 058
     Dates: start: 20100419, end: 20100419
  18. DIPHENHYDRAMINE HCL [Concomitant]
     Indication: PSORIASIS
     Dosage: Q.S.
     Route: 061
     Dates: start: 20100817

REACTIONS (4)
  - CHOLELITHIASIS [None]
  - HYPERTENSION [None]
  - GASTRIC NEOPLASM [None]
  - SPLENIC INJURY [None]
